FAERS Safety Report 9407308 (Version 3)
Quarter: 2013Q3

REPORT INFORMATION
  Report Type: Report from Study
  Country: US (occurrence: US)
  Receive Date: 20130718
  Receipt Date: 20130911
  Transmission Date: 20140515
  Serious: Yes (Disabling, Other)
  Sender: FDA-Public Use
  Company Number: US-ROCHE-1248529

PATIENT
  Sex: Male

DRUGS (2)
  1. LUCENTIS [Suspect]
     Indication: DIABETIC RETINOPATHY
     Dosage: RIGHT EYE
     Route: 050
  2. LUCENTIS [Suspect]
     Indication: DIABETIC RETINAL OEDEMA

REACTIONS (10)
  - Blindness [Unknown]
  - Vitreous adhesions [Unknown]
  - Diabetic retinopathy [Unknown]
  - Blindness [Unknown]
  - Visual acuity reduced [Unknown]
  - Retinal detachment [Unknown]
  - Retinal tear [Unknown]
  - Retinopathy [Unknown]
  - Vitreous haemorrhage [Unknown]
  - Iris neovascularisation [Unknown]
